FAERS Safety Report 17684444 (Version 1)
Quarter: 2020Q2

REPORT INFORMATION
  Report Type: Spontaneous
  Country: US (occurrence: US)
  Receive Date: 20200417
  Receipt Date: 20200417
  Transmission Date: 20200714
  Serious: No
  Sender: FDA-Public Use
  Company Number: None

PATIENT
  Sex: Female

DRUGS (1)
  1. SILIQ [Suspect]
     Active Substance: BRODALUMAB
     Indication: CORONARY ARTERY DISEASE
     Dosage: ?          OTHER DOSE:210MG/1.5ML;OTHER ROUTE:UNDER THE SKIN?
     Dates: start: 20191025

REACTIONS (1)
  - Drug ineffective [None]
